FAERS Safety Report 4305269-X (Version None)
Quarter: 2004Q1

REPORT INFORMATION
  Report Type: 
  Country: None (occurrence: None)
  Receive Date: 20040226
  Receipt Date: 20030107
  Transmission Date: 20041129
  Serious: No
  Sender: FDA-Public Use
  Company Number: US-BRISTOL-MYERS SQUIBB COMPANY-12153011

PATIENT
  Sex: Female

DRUGS (1)
  1. TAXOL [Suspect]
     Indication: OVARIAN CANCER

REACTIONS (1)
  - ADVERSE EVENT [None]
